FAERS Safety Report 7295424-1 (Version None)
Quarter: 2011Q1

REPORT INFORMATION
  Report Type: 
  Country: None (occurrence: None)
  Receive Date: 20110216
  Receipt Date: 20110104
  Transmission Date: 20110831
  Serious: No
  Sender: FDA-Public Use
  Company Number: US-ABBOTT-11P-163-0695233-00

PATIENT
  Sex: Female

DRUGS (1)
  1. SIMCOR [Suspect]
     Indication: HYPERLIPIDAEMIA
     Dosage: DAILY AT BEDTIME
     Dates: start: 20101201

REACTIONS (4)
  - HYPERHIDROSIS [None]
  - HEADACHE [None]
  - FLUSHING [None]
  - FEELING HOT [None]
